FAERS Safety Report 6347266-9 (Version None)
Quarter: 2009Q3

REPORT INFORMATION
  Report Type: 
  Country: None (occurrence: None)
  Receive Date: 20090908
  Receipt Date: 20090908
  Transmission Date: 20100115
  Serious: Yes (Life-Threatening, Hospitalization)
  Sender: FDA-Public Use
  Company Number: None

PATIENT
  Age: 50 Year
  Sex: Female
  Weight: 99.7913 kg

DRUGS (6)
  1. CHANTIX [Suspect]
     Indication: NICOTINE DEPENDENCE
     Dosage: A TABLET TWICE DAILY PO
     Route: 048
     Dates: start: 20070214, end: 20070401
  2. AVAPRO [Concomitant]
  3. CYMBALTA DULOXETINE HCI [Concomitant]
  4. ATENOLOL / CHLORATHAIDONE [Concomitant]
  5. ZIRTAC [Concomitant]
  6. SONATA [Concomitant]

REACTIONS (4)
  - DEPRESSION [None]
  - ECONOMIC PROBLEM [None]
  - IMPRISONMENT [None]
  - SUICIDE ATTEMPT [None]
